FAERS Safety Report 10167894 (Version 1)
Quarter: 2014Q2

REPORT INFORMATION
  Report Type: Spontaneous
  Country: DK (occurrence: DK)
  Receive Date: 20140512
  Receipt Date: 20140512
  Transmission Date: 20141212
  Serious: Yes (Hospitalization)
  Sender: FDA-Public Use
  Company Number: DK-ABBVIE-14P-044-1234456-00

PATIENT
  Age: 46 Year
  Sex: Female
  Weight: 64 kg

DRUGS (2)
  1. HUMIRA [Suspect]
     Indication: CONNECTIVE TISSUE DISORDER
     Dates: start: 20120224, end: 20120617
  2. METHOTREXATE SODIUM [Suspect]
     Indication: HLA MARKER STUDY POSITIVE
     Dates: start: 20120224, end: 20120617

REACTIONS (11)
  - Pneumonitis [Recovered/Resolved]
  - Pulmonary fibrosis [Recovered/Resolved]
  - Cough [Not Recovered/Not Resolved]
  - Dyspnoea [Not Recovered/Not Resolved]
  - Drug ineffective [Unknown]
  - Pain [Unknown]
  - Fatigue [Unknown]
  - Eye pruritus [Unknown]
  - Pruritus [Unknown]
  - Dry eye [Unknown]
  - Sleep disorder [Unknown]
